FAERS Safety Report 18272958 (Version 1)
Quarter: 2020Q3

REPORT INFORMATION
  Report Type: Spontaneous
  Country: US (occurrence: US)
  Receive Date: 20200618
  Receipt Date: 20200618
  Transmission Date: 20201103
  Serious: No
  Sender: FDA-Public Use
  Company Number: None

PATIENT
  Age: 7 Decade
  Sex: Female

DRUGS (2)
  1. ACETAMINOPHEN\ASPIRIN [Suspect]
     Active Substance: ACETAMINOPHEN\ASPIRIN
     Indication: COVID-19
     Dosage: 500MG TO 1000MG?FREQUENCY: TDS?
     Route: 048
     Dates: start: 2020
  2. AMOXICILLIN?POTASSIUM CLAVULANATE [Suspect]
     Active Substance: AMOXICILLIN\CLAVULANATE POTASSIUM
     Indication: COVID-19
     Dosage: ?          OTHER DOSE:500?1000 MG;?
     Route: 048
     Dates: start: 2020

REACTIONS (4)
  - Pyrexia [None]
  - Condition aggravated [None]
  - Product use in unapproved indication [None]
  - Cough [None]
